FAERS Safety Report 11906483 (Version 1)
Quarter: 2016Q1

REPORT INFORMATION
  Report Type: Spontaneous
  Country: US (occurrence: US)
  Receive Date: 20160111
  Receipt Date: 20160111
  Transmission Date: 20160526
  Serious: No
  Sender: FDA-Public Use
  Company Number: US-PFIZER INC-2015477030

PATIENT
  Age: 82 Year
  Sex: Female

DRUGS (2)
  1. AROMASIN [Suspect]
     Active Substance: EXEMESTANE
     Indication: METASTASES TO BONE
  2. AROMASIN [Suspect]
     Active Substance: EXEMESTANE
     Indication: BREAST CANCER
     Dosage: 25 MG, DAILY

REACTIONS (6)
  - Condition aggravated [Unknown]
  - Arthritis [Unknown]
  - Fatigue [Unknown]
  - Somnolence [Unknown]
  - Drug intolerance [Unknown]
  - Malaise [Unknown]
